FAERS Safety Report 7232926-8 (Version None)
Quarter: 2011Q1

REPORT INFORMATION
  Report Type: 
  Country: None (occurrence: None)
  Receive Date: 20110119
  Receipt Date: 20110113
  Transmission Date: 20110831
  Serious: Yes (Hospitalization, Other)
  Sender: FDA-Public Use
  Company Number: PHHY2010CA66174

PATIENT
  Sex: Female

DRUGS (5)
  1. COLACE [Concomitant]
  2. CARBACHOL [Concomitant]
  3. ACLASTA [Suspect]
     Indication: OSTEOPOROSIS
     Dosage: 5 MG, UNK
     Route: 042
     Dates: start: 20090724
  4. PRILOSEC [Concomitant]
  5. SYNTHROID [Concomitant]

REACTIONS (10)
  - MALAISE [None]
  - ABDOMINAL DISCOMFORT [None]
  - MYALGIA [None]
  - GAIT DISTURBANCE [None]
  - INFLUENZA LIKE ILLNESS [None]
  - CHOLELITHIASIS [None]
  - PYREXIA [None]
  - DECREASED APPETITE [None]
  - WEIGHT DECREASED [None]
  - ASTHENIA [None]
